FAERS Safety Report 24054700 (Version 1)
Quarter: 2024Q3

REPORT INFORMATION
  Report Type: Spontaneous
  Country: JP (occurrence: JP)
  Receive Date: 20240705
  Receipt Date: 20240705
  Transmission Date: 20241017
  Serious: Yes (Life-Threatening, Hospitalization, Other)
  Sender: Steriscience PTE
  Company Number: JP-STERISCIENCE B.V.-2019-ST-000004

PATIENT
  Age: 91 Year
  Sex: Male

DRUGS (6)
  1. VANCOMYCIN [Suspect]
     Active Substance: VANCOMYCIN
     Indication: Device related infection
     Dosage: 0.5 GRAM, QD
     Route: 065
  2. VANCOMYCIN [Suspect]
     Active Substance: VANCOMYCIN
     Indication: Staphylococcal infection
  3. MEROPENEM [Suspect]
     Active Substance: MEROPENEM
     Indication: Staphylococcal infection
     Dosage: 2 GRAM, QD
  4. MEROPENEM [Suspect]
     Active Substance: MEROPENEM
     Indication: Device related infection
  5. CEFAZOLIN [Suspect]
     Active Substance: CEFAZOLIN
     Indication: Device related infection
     Dosage: UNK
     Route: 065
  6. CEFAZOLIN [Suspect]
     Active Substance: CEFAZOLIN
     Indication: Staphylococcal infection

REACTIONS (4)
  - Vitamin K deficiency [Unknown]
  - Cerebral haemorrhage [Unknown]
  - Coagulopathy [None]
  - Dysbiosis [None]
